FAERS Safety Report 9442439 (Version 1)
Quarter: 2013Q3

REPORT INFORMATION
  Report Type: Spontaneous
  Country: US (occurrence: None)
  Receive Date: 20130805
  Receipt Date: 20130805
  Transmission Date: 20140515
  Serious: Yes (Disabling, Other)
  Sender: FDA-Public Use
  Company Number: None

PATIENT
  Sex: Male
  Weight: 77.11 kg

DRUGS (29)
  1. KLONOPIN [Suspect]
     Indication: SUBSTANCE USE
  2. MORPHINE SULFATE [Suspect]
     Dosage: KLONOPIN + MORPHINE SULFATE USED TOGETHER ?GENERICS AVAILABLE I.E. CLONIZEPAM
  3. IMITREX [Concomitant]
  4. AMLODIPINE BESOLATE [Concomitant]
  5. CHOLESCALCIFEGAL [Concomitant]
  6. GLARIXOMONE HCL [Concomitant]
  7. BRONETALOG GINGER [Concomitant]
  8. METHAPHAM [Concomitant]
  9. COMSTANISON SALINE NASAL SPRAY [Concomitant]
  10. RANITIDINE HCL [Concomitant]
  11. HYDROXIZAR HCL [Concomitant]
  12. METOCLOPROMIDE [Concomitant]
  13. LISINOPRIL [Concomitant]
  14. MAGNESIUM OXIDE [Concomitant]
  15. CITATOPRAM HYDROBROMIDE [Concomitant]
  16. ATENOLOL [Concomitant]
  17. CLARHALIDONE [Concomitant]
  18. PROVENTIL HFA [Concomitant]
  19. COMBIVENT [Concomitant]
  20. FONID/ AEROLIZER [Concomitant]
  21. TRIXAOIN [Concomitant]
  22. THERAGASIC [Concomitant]
  23. GUEIFENESIN [Concomitant]
  24. SALSATE [Concomitant]
  25. PHENYTEPHRINE HCL [Concomitant]
  26. PROMETHAZINE HCL [Concomitant]
  27. CYCLOBENZAPINE HCL [Concomitant]
  28. MELOXICAM [Concomitant]
  29. PREDNISONE [Concomitant]

REACTIONS (1)
  - Hallucination, auditory [None]
